FAERS Safety Report 9812996 (Version 1)
Quarter: 2014Q1

REPORT INFORMATION
  Report Type: Spontaneous
  Country: US (occurrence: None)
  Receive Date: 20140108
  Receipt Date: 20140108
  Transmission Date: 20141002
  Serious: Yes (Hospitalization)
  Sender: FDA-Public Use
  Company Number: MAC2013000807

PATIENT
  Age: 57 Year
  Sex: Male

DRUGS (4)
  1. AMLODIPINE BESYLATE [Suspect]
     Indication: BLOOD PRESSURE
     Dosage: 5 MG, EVERY DAY, UNKNOWN
  2. CAPTOPRIL (CAPTOPRIL) (CAPTOPRIL) [Concomitant]
  3. CAPTOPRIL (CAPTOPIL) [Concomitant]
  4. ASA (ACETYLSALICYLIC ACID) [Concomitant]

REACTIONS (1)
  - Headache [None]
